FAERS Safety Report 9158492 (Version 1)
Quarter: 2013Q1

REPORT INFORMATION
  Report Type: Spontaneous
  Country: US (occurrence: US)
  Receive Date: 20130312
  Receipt Date: 20130312
  Transmission Date: 20140127
  Serious: No
  Sender: FDA-Public Use
  Company Number: US-ASTRAZENECA-2013SE09591

PATIENT
  Sex: Female

DRUGS (4)
  1. NEXIUM [Suspect]
     Route: 048
  2. ARAVA [Interacting]
     Route: 048
  3. METOPROLOL ER [Interacting]
     Route: 048
  4. RITUXIMAB [Interacting]
     Route: 065

REACTIONS (2)
  - Drug interaction [Unknown]
  - Cough [Unknown]
